FAERS Safety Report 19967628 (Version 1)
Quarter: 2021Q4

REPORT INFORMATION
  Report Type: Spontaneous
  Country: US (occurrence: US)
  Receive Date: 20211014
  Receipt Date: 20211014
  Transmission Date: 20220303
  Serious: Yes (Hospitalization)
  Sender: FDA-Public Use
  Company Number: None

PATIENT
  Age: 55 Year
  Sex: Male
  Weight: 127 kg

DRUGS (3)
  1. ABIRATERONE ACETATE [Suspect]
     Active Substance: ABIRATERONE ACETATE
     Dates: end: 20200520
  2. CABAZITAXEL [Suspect]
     Active Substance: CABAZITAXEL
     Dates: end: 20200123
  3. PREDNISONE [Suspect]
     Active Substance: PREDNISONE
     Dates: end: 20200520

REACTIONS (2)
  - Sepsis [None]
  - Pyelonephritis [None]

NARRATIVE: CASE EVENT DATE: 20200520
